FAERS Safety Report 14260100 (Version 2)
Quarter: 2018Q3

REPORT INFORMATION
  Report Type: Spontaneous
  Country: US (occurrence: US)
  Receive Date: 20171207
  Receipt Date: 20180725
  Transmission Date: 20181010
  Serious: Yes (Disabling, Other)
  Sender: FDA-Public Use
  Company Number: US-BAYER-2017-230711

PATIENT
  Age: 26 Year
  Sex: Female
  Weight: 66.21 kg

DRUGS (1)
  1. MIRENA [Suspect]
     Active Substance: LEVONORGESTREL
     Indication: CONTRACEPTION
     Dosage: 20 MCG/24HR, CONT
     Route: 015
     Dates: start: 2009, end: 2015

REACTIONS (7)
  - Abortion spontaneous [None]
  - Genital haemorrhage [None]
  - Device use issue [None]
  - Drug ineffective [None]
  - Dyspareunia [None]
  - Pregnancy with contraceptive device [None]
  - Infertility female [Not Recovered/Not Resolved]
